FAERS Safety Report 9907916 (Version 1)
Quarter: 2014Q1

REPORT INFORMATION
  Report Type: Spontaneous
  Country: US (occurrence: US)
  Receive Date: 20140219
  Receipt Date: 20140219
  Transmission Date: 20141002
  Serious: No
  Sender: FDA-Public Use
  Company Number: US-BIOGENIDEC-2014BI015518

PATIENT
  Age: 67 Year
  Sex: Female

DRUGS (14)
  1. TECFIDERA [Suspect]
     Indication: MULTIPLE SCLEROSIS
     Route: 048
     Dates: start: 2013
  2. TECFIDERA [Suspect]
     Indication: MULTIPLE SCLEROSIS
     Route: 048
     Dates: start: 2013
  3. TECFIDERA [Suspect]
     Indication: MULTIPLE SCLEROSIS
     Route: 048
     Dates: start: 2013
  4. AMLODIPINE BESYLATE [Concomitant]
  5. DIOVAN [Concomitant]
  6. GABAPENTIN [Concomitant]
  7. NORTRIPTYLINE [Concomitant]
  8. VIBRYD [Concomitant]
  9. B-12 [Concomitant]
  10. CALCIUM WITH D [Concomitant]
  11. GILENYA [Concomitant]
  12. NEURONTIN [Concomitant]
  13. PEPTO BISMOL [Concomitant]
  14. VITAMIN B COMPLEX [Concomitant]

REACTIONS (3)
  - Drug intolerance [Unknown]
  - Underdose [Unknown]
  - Dyspepsia [Unknown]
